FAERS Safety Report 20578205 (Version 1)
Quarter: 2022Q1

REPORT INFORMATION
  Report Type: Report from Study
  Country: US (occurrence: US)
  Receive Date: 20220310
  Receipt Date: 20220310
  Transmission Date: 20220423
  Serious: Yes (Death, Life-Threatening, Other)
  Sender: FDA-Public Use
  Company Number: US-BAYER-2020-245918

PATIENT
  Age: 29 Year
  Sex: Male

DRUGS (9)
  1. ALPRAZOLAM [Interacting]
     Active Substance: ALPRAZOLAM
     Dosage: UNK
  2. FENTANYL CITRATE [Interacting]
     Active Substance: FENTANYL CITRATE
     Dosage: UNK
  3. CHLORDIAZEPOXIDE [Interacting]
     Active Substance: CHLORDIAZEPOXIDE
     Dosage: UNK
  4. ETIZOLAM [Interacting]
     Active Substance: ETIZOLAM
     Dosage: UNK
  5. NORDAZEPAM [Interacting]
     Active Substance: NORDAZEPAM
     Dosage: UNK
  6. BENAZEPRIL [Concomitant]
     Active Substance: BENAZEPRIL HYDROCHLORIDE
     Dosage: UNK
  7. DOXYLAMINE [Concomitant]
     Active Substance: DOXYLAMINE
     Dosage: UNK
  8. MIRTAZAPINE [Concomitant]
     Active Substance: MIRTAZAPINE
     Dosage: UNK
  9. HYDROXYZINE [Concomitant]
     Active Substance: HYDROXYZINE HYDROCHLORIDE
     Dosage: UNK

REACTIONS (5)
  - Toxicity to various agents [Fatal]
  - Drug interaction [Fatal]
  - Alcohol interaction [Fatal]
  - Respiratory depression [Fatal]
  - Pulmonary oedema [Fatal]

NARRATIVE: CASE EVENT DATE: 20180101
